FAERS Safety Report 14022066 (Version 1)
Quarter: 2017Q3

REPORT INFORMATION
  Report Type: Spontaneous
  Country: US (occurrence: None)
  Receive Date: 20170928
  Receipt Date: 20170928
  Transmission Date: 20171128
  Serious: No
  Sender: FDA-Public Use
  Company Number: None

PATIENT
  Age: 65 Year
  Sex: Male

DRUGS (9)
  1. URSODIOL. [Concomitant]
     Active Substance: URSODIOL
  2. VRAYLAR [Concomitant]
     Active Substance: CARIPRAZINE
  3. ATORVASTATIN [Concomitant]
     Active Substance: ATORVASTATIN
  4. QUETIAPINE. [Concomitant]
     Active Substance: QUETIAPINE
  5. OCALIVA [Suspect]
     Active Substance: OBETICHOLIC ACID
     Indication: BILIARY CIRRHOSIS PRIMARY
     Route: 048
     Dates: start: 20170227
  6. LIOTHYRONINE [Concomitant]
     Active Substance: LIOTHYRONINE
  7. LITHIUM CARB [Concomitant]
     Active Substance: LITHIUM CARBONATE
  8. REXULTI [Concomitant]
     Active Substance: BREXPIPRAZOLE
  9. LEVOTHYROXINE. [Concomitant]
     Active Substance: LEVOTHYROXINE

REACTIONS (2)
  - Product formulation issue [None]
  - Pruritus [None]

NARRATIVE: CASE EVENT DATE: 201709
